FAERS Safety Report 9035082 (Version 1)
Quarter: 2013Q1

REPORT INFORMATION
  Report Type: Spontaneous
  Country: US (occurrence: US)
  Receive Date: 20130129
  Receipt Date: 20130129
  Transmission Date: 20140127
  Serious: No
  Sender: FDA-Public Use
  Company Number: US-ABBOTT-12P-163-0890932-00

PATIENT
  Sex: Female
  Weight: 72.64 kg

DRUGS (6)
  1. HUMIRA 40 MG/0.8 ML PEN [Suspect]
     Indication: ANKYLOSING SPONDYLITIS
     Route: 058
     Dates: start: 201111
  2. OMEPRAZOLE [Concomitant]
     Indication: GASTROOESOPHAGEAL REFLUX DISEASE
  3. ALLEGRA [Concomitant]
     Indication: PRODUCT USED FOR UNKNOWN INDICATION
  4. BIOTIN [Concomitant]
     Indication: PRODUCT USED FOR UNKNOWN INDICATION
  5. PREVACID [Concomitant]
     Indication: PRODUCT USED FOR UNKNOWN INDICATION
  6. SYMBICORT [Concomitant]
     Indication: PRODUCT USED FOR UNKNOWN INDICATION

REACTIONS (3)
  - Alopecia [Not Recovered/Not Resolved]
  - Hair disorder [Not Recovered/Not Resolved]
  - Hair texture abnormal [Not Recovered/Not Resolved]
